FAERS Safety Report 5082713-4 (Version None)
Quarter: 2006Q3

REPORT INFORMATION
  Report Type: 
  Country: None (occurrence: None)
  Receive Date: 20060817
  Receipt Date: 20060807
  Transmission Date: 20061208
  Serious: Yes (Hospitalization)
  Sender: FDA-Public Use
  Company Number: GB-BRISTOL-MYERS SQUIBB COMPANY-13467782

PATIENT
  Age: 51 Year
  Sex: Female

DRUGS (2)
  1. PACLITAXEL [Suspect]
     Indication: BREAST CANCER
     Dates: start: 20060718, end: 20060718
  2. EPIRUBICIN [Suspect]
     Indication: BREAST CANCER

REACTIONS (3)
  - BODY TEMPERATURE INCREASED [None]
  - INFECTION [None]
  - TOOTH ABSCESS [None]
